FAERS Safety Report 23650991 (Version 1)
Quarter: 2024Q1

REPORT INFORMATION
  Report Type: Spontaneous
  Country: US (occurrence: US)
  Receive Date: 20240320
  Receipt Date: 20240320
  Transmission Date: 20240409
  Serious: No
  Sender: FDA-Public Use
  Company Number: US-SA-SAC20240315000619

PATIENT
  Age: 7 Year
  Sex: Female

DRUGS (1)
  1. DUPILUMAB [Suspect]
     Active Substance: DUPILUMAB
     Indication: Dermatitis atopic
     Dosage: 300 MG, Q4W
     Route: 058
     Dates: start: 20231110

REACTIONS (4)
  - Abdominal pain [Not Recovered/Not Resolved]
  - Blood calcium decreased [Unknown]
  - Eosinophil count increased [Unknown]
  - Arthralgia [Not Recovered/Not Resolved]
